FAERS Safety Report 8564466-8 (Version None)
Quarter: 2012Q3

REPORT INFORMATION
  Report Type: 
  Country: None (occurrence: None)
  Receive Date: 20120803
  Receipt Date: 20120723
  Transmission Date: 20120928
  Serious: Yes (Death, Life-Threatening)
  Sender: FDA-Public Use
  Company Number: SG-NOVOPROD-356251

PATIENT
  Age: 78 Year
  Sex: Female

DRUGS (7)
  1. FAMOTIDINE [Concomitant]
  2. CARVEDILOL [Concomitant]
  3. ASPIRIN [Concomitant]
  4. REPAGLINIDE [Suspect]
     Indication: DIABETES MELLITUS
     Dosage: 5 MG, SINGLE
     Route: 065
     Dates: start: 20100923, end: 20100923
  5. AMOXICILLIN AND CLAVULANATE POTASSIUM [Concomitant]
     Route: 042
  6. VITAMIN D [Concomitant]
  7. LEVODOPA [Concomitant]

REACTIONS (9)
  - DEATH [None]
  - METABOLIC ENCEPHALOPATHY [None]
  - ACCIDENTAL OVERDOSE [None]
  - HYPOGLYCAEMIA [None]
  - DRUG DISPENSING ERROR [None]
  - CONVULSION [None]
  - HYPOTENSION [None]
  - CEREBRAL ISCHAEMIA [None]
  - HYPOXIC-ISCHAEMIC ENCEPHALOPATHY [None]
